FAERS Safety Report 6388070-5 (Version None)
Quarter: 2009Q4

REPORT INFORMATION
  Report Type: 
  Country: None (occurrence: None)
  Receive Date: 20091005
  Receipt Date: 20090924
  Transmission Date: 20100525
  Serious: Yes (Hospitalization, Other)
  Sender: FDA-Public Use
  Company Number: US-AMGEN-QUU351496

PATIENT
  Sex: Male
  Weight: 57.2 kg

DRUGS (48)
  1. ARANESP [Suspect]
     Indication: DIALYSIS
     Route: 058
     Dates: start: 20090223
  2. PROCRIT [Suspect]
     Indication: DIALYSIS
     Route: 058
  3. VENOFER [Concomitant]
  4. NOVOLIN R [Concomitant]
  5. MEGESTROL ACETATE [Concomitant]
     Route: 048
  6. SIMVASTATIN [Concomitant]
     Route: 048
  7. CATAPRES-TTS-1 [Concomitant]
     Route: 062
  8. NOVOLIN N [Concomitant]
     Route: 058
  9. ACETAMINOPHEN AND HYDROCODONE BITARTRATE [Concomitant]
     Route: 048
  10. NEUTRA-PHOS-K [Concomitant]
     Route: 048
  11. PROMETHAZINE [Concomitant]
     Route: 054
  12. ACETAMINOPHEN [Concomitant]
     Route: 054
  13. CLARITHROMYCIN [Concomitant]
     Route: 048
  14. AMOXICILLIN [Concomitant]
     Route: 048
  15. ERYTHROMYCIN [Concomitant]
     Route: 048
  16. METOCLOPRAMIDE [Concomitant]
     Route: 048
  17. METOPROLOL TARTRATE [Concomitant]
     Route: 048
  18. ASCORBIC ACID [Concomitant]
     Route: 048
  19. NORTRIPTYLINE HCL [Concomitant]
     Route: 048
  20. ONDANSETRON [Concomitant]
     Route: 048
  21. ZEGERID [Concomitant]
     Route: 048
  22. CIPROFLOXACIN HYDROCHLORIDE [Concomitant]
     Route: 048
  23. PRO-AIR (PARKE DAVIS) [Concomitant]
     Route: 055
  24. GLIPIZIDE [Concomitant]
     Route: 048
  25. FUROSEMIDE [Concomitant]
     Route: 048
  26. ATENOLOL [Concomitant]
     Route: 048
  27. TRIAMCINOLONE ACETONIDE [Concomitant]
     Route: 061
  28. FLUNISOLIDE [Concomitant]
     Route: 045
  29. SODIUM POLYSTYRENE SULFONATE [Concomitant]
     Route: 048
  30. HYDROCHLOROTHIAZIDE [Concomitant]
     Route: 048
  31. AMLODIPINE [Concomitant]
     Route: 048
  32. LIDOCAINE HYDROCHLORIDE [Concomitant]
  33. FERROUS SULFATE TAB [Concomitant]
     Route: 048
  34. SERTRALINE HCL [Concomitant]
     Route: 048
  35. NPH INSULIN [Concomitant]
  36. LACTULOSE [Concomitant]
  37. NYSTATIN [Concomitant]
  38. PHOSLO [Concomitant]
  39. COMBIVENT [Concomitant]
  40. CLONIDINE [Concomitant]
     Route: 048
  41. CLONAZEPAM [Concomitant]
     Route: 048
  42. FLONASE [Concomitant]
  43. DILAUDID [Concomitant]
  44. ZOLOFT [Concomitant]
     Route: 048
  45. HYDROMORPHONE [Concomitant]
  46. TYLENOL W/ CODEINE NO. 3 [Concomitant]
  47. LACTATED RINGER'S [Concomitant]
  48. BUMEX [Concomitant]

REACTIONS (34)
  - ANAEMIA [None]
  - ANAPHYLACTIC REACTION [None]
  - ASTHMA [None]
  - BACK PAIN [None]
  - BLOOD GLUCOSE DECREASED [None]
  - CONSTIPATION [None]
  - DEPRESSION [None]
  - DIABETIC NEUROPATHY [None]
  - DISCOMFORT [None]
  - DRUG HYPERSENSITIVITY [None]
  - DYSPNOEA [None]
  - FAECALOMA [None]
  - FATIGUE [None]
  - FEEDING TUBE COMPLICATION [None]
  - GASTRITIS [None]
  - HYPERTENSION [None]
  - IMPAIRED GASTRIC EMPTYING [None]
  - INCREASED UPPER AIRWAY SECRETION [None]
  - INSOMNIA [None]
  - NASOPHARYNGITIS [None]
  - NAUSEA [None]
  - OEDEMA PERIPHERAL [None]
  - PHARYNGEAL OEDEMA [None]
  - PLEURAL EFFUSION [None]
  - PNEUMONIA [None]
  - PROCEDURAL PAIN [None]
  - RASH MACULO-PAPULAR [None]
  - RHINITIS ALLERGIC [None]
  - RHINITIS SEASONAL [None]
  - SWELLING FACE [None]
  - SWOLLEN TONGUE [None]
  - THROAT IRRITATION [None]
  - TORSADE DE POINTES [None]
  - URTICARIA [None]
